FAERS Safety Report 7120610-0 (Version None)
Quarter: 2010Q4

REPORT INFORMATION
  Report Type: 
  Country: None (occurrence: None)
  Receive Date: 20101122
  Receipt Date: 20101122
  Transmission Date: 20110411
  Serious: Yes (Life-Threatening, Hospitalization, Disabling, Other)
  Sender: FDA-Public Use
  Company Number: None

PATIENT
  Sex: Female
  Weight: 53.5244 kg

DRUGS (1)
  1. 6-MERCAPTOPURINE 50MG TABL (2 1/2 TABLETS DAILY = 125MG [Suspect]
     Indication: COLITIS
     Dosage: 50MG TABL. 2 1/2 TABLES = 125MG. DAILY
     Dates: start: 20060101, end: 20090101

REACTIONS (3)
  - DIABETES MELLITUS [None]
  - FLUID RETENTION [None]
  - HEPATITIS CHOLESTATIC [None]
